FAERS Safety Report 18980486 (Version 1)
Quarter: 2021Q1

REPORT INFORMATION
  Report Type: Other
  Country: US (occurrence: US)
  Receive Date: 20210308
  Receipt Date: 20210308
  Transmission Date: 20210420
  Serious: Yes (Other)
  Sender: FDA-Public Use
  Company Number: US-ROCHE-2776869

PATIENT
  Sex: Female

DRUGS (1)
  1. PEGASYS [Suspect]
     Active Substance: PEGINTERFERON ALFA-2A
     Indication: MYELOPROLIFERATIVE NEOPLASM
     Dosage: INJECT 1ML (180MCG) SUBCUTANEOUSLY ONCE PER WEEK
     Route: 058

REACTIONS (4)
  - Treatment noncompliance [Unknown]
  - Myocardial infarction [Unknown]
  - Intentional product use issue [Unknown]
  - Off label use [Unknown]
